FAERS Safety Report 7513147-8 (Version None)
Quarter: 2011Q2

REPORT INFORMATION
  Report Type: 
  Country: None (occurrence: None)
  Receive Date: 20110531
  Receipt Date: 20110524
  Transmission Date: 20111010
  Serious: Yes (Life-Threatening)
  Sender: FDA-Public Use
  Company Number: TR-MERCK-1105TUR00007

PATIENT
  Age: 41 Year
  Sex: Female
  Weight: 93 kg

DRUGS (8)
  1. METOPROLOL SUCCINATE [Concomitant]
     Route: 048
  2. DICLOFENAC SODIUM [Concomitant]
     Route: 048
  3. INVANZ [Suspect]
     Indication: SOFT TISSUE INFECTION
     Route: 041
  4. ATORVASTATIN [Concomitant]
     Route: 048
  5. SPIRONOLACTONE [Concomitant]
     Route: 048
  6. FAMOTIDINE [Concomitant]
     Route: 048
  7. INSULIN HUMAN, ISOPHANE [Concomitant]
     Route: 058
  8. INSULIN HUMAN [Concomitant]
     Route: 058

REACTIONS (1)
  - EPILEPSY [None]
